FAERS Safety Report 9747261 (Version 2)
Quarter: 2013Q4

REPORT INFORMATION
  Report Type: Report from Study
  Country: US (occurrence: US)
  Receive Date: 20131212
  Receipt Date: 20131218
  Transmission Date: 20140711
  Serious: Yes (Other)
  Sender: FDA-Public Use
  Company Number: US-ROCHE-1316866

PATIENT
  Age: 49 Year
  Sex: Female
  Weight: 70.37 kg

DRUGS (18)
  1. AVASTIN [Suspect]
     Indication: BREAST CANCER
     Route: 042
     Dates: start: 200809, end: 200901
  2. DETROL LA [Concomitant]
     Route: 048
     Dates: start: 2008
  3. PANTOPRAZOLE [Concomitant]
     Route: 048
     Dates: start: 2008
  4. PRISTIQ ER [Concomitant]
     Indication: DEPRESSION
     Route: 048
     Dates: start: 2008
  5. PRISTIQ ER [Concomitant]
     Indication: ANXIETY
  6. TRAZODONE [Concomitant]
     Dosage: 1-2 TAB PER NIGHT FOR SLEEP
     Route: 048
     Dates: start: 2008
  7. GABAPENTIN [Concomitant]
     Indication: MUSCLE SPASMS
     Route: 048
  8. FAMOTIDINE [Concomitant]
     Route: 048
     Dates: start: 2007
  9. IBUPROFEN [Concomitant]
     Indication: PAIN
     Route: 048
  10. BABY ASPIRIN [Concomitant]
     Route: 048
     Dates: start: 2007
  11. FISH OIL [Concomitant]
     Route: 048
     Dates: start: 2009
  12. LEVOTHYROXINE [Concomitant]
     Indication: HYPOTHYROIDISM
     Route: 048
     Dates: start: 2008
  13. SPIRONOLACTONE [Concomitant]
     Dosage: CUTS IN HALF
     Route: 048
  14. ALPRAZOLAM [Concomitant]
     Indication: ANXIETY
     Dosage: 3-4 IN A DAY AS NEEDED
     Route: 048
     Dates: start: 1999
  15. CRESTOR [Concomitant]
     Dosage: AT NIGHT
     Route: 048
  16. ATORVASTATIN [Concomitant]
     Dosage: AT NIGHT
     Route: 048
  17. VITAMIN C [Concomitant]
     Route: 048
     Dates: start: 200810
  18. VITAMIN B12 [Concomitant]
     Route: 048
     Dates: start: 200810

REACTIONS (23)
  - Peripheral arterial occlusive disease [Unknown]
  - Skin discolouration [Unknown]
  - Blindness [Unknown]
  - Gastrointestinal haemorrhage [Recovered/Resolved]
  - Constipation [Recovered/Resolved]
  - Asthenia [Recovering/Resolving]
  - Abdominal pain [Recovered/Resolved]
  - Balance disorder [Recovering/Resolving]
  - Mood swings [Recovering/Resolving]
  - Alopecia [Unknown]
  - Abasia [Unknown]
  - Poor quality sleep [Unknown]
  - Fall [Unknown]
  - Hypotension [Unknown]
  - Rash [Unknown]
  - Rash pruritic [Recovered/Resolved]
  - Thyroid disorder [Unknown]
  - Hypoaesthesia [Unknown]
  - Paraesthesia [Unknown]
  - Grip strength decreased [Unknown]
  - Carpal tunnel syndrome [Unknown]
  - Tendonitis [Unknown]
  - Loss of libido [Unknown]
